FAERS Safety Report 17402475 (Version 1)
Quarter: 2020Q1

REPORT INFORMATION
  Report Type: Spontaneous
  Country: US (occurrence: US)
  Receive Date: 20200210
  Receipt Date: 20200210
  Transmission Date: 20200409
  Serious: Yes (Other)
  Sender: FDA-Public Use
  Company Number: None

PATIENT
  Age: 51 Year
  Sex: Female
  Weight: 73.8 kg

DRUGS (18)
  1. WELLBUTRIN [Concomitant]
     Active Substance: BUPROPION HYDROCHLORIDE
  2. ZINC. [Concomitant]
     Active Substance: ZINC
  3. FOLATE [Concomitant]
     Active Substance: FOLATE SODIUM
  4. ABILIFY [Concomitant]
     Active Substance: ARIPIPRAZOLE
  5. XANAX [Concomitant]
     Active Substance: ALPRAZOLAM
  6. VITAMIN B12 [Concomitant]
     Active Substance: CYANOCOBALAMIN
  7. PRAVASTATIN. [Concomitant]
     Active Substance: PRAVASTATIN
  8. MIRAPEX [Concomitant]
     Active Substance: PRAMIPEXOLE DIHYDROCHLORIDE
  9. SINGULAIR [Concomitant]
     Active Substance: MONTELUKAST SODIUM
  10. CONCERTA [Concomitant]
     Active Substance: METHYLPHENIDATE HYDROCHLORIDE
  11. CLONAZEPAM. [Concomitant]
     Active Substance: CLONAZEPAM
  12. LAMICTAL [Concomitant]
     Active Substance: LAMOTRIGINE
  13. B1 [Concomitant]
  14. SELENIUM [Concomitant]
     Active Substance: SELENIUM
  15. SYNTHROID [Concomitant]
     Active Substance: LEVOTHYROXINE SODIUM
  16. METHYLPHENIDATE 54MG [Suspect]
     Active Substance: METHYLPHENIDATE
     Indication: ATTENTION DEFICIT/HYPERACTIVITY DISORDER
     Dosage: ?          QUANTITY:1 TABLET(S);?
     Route: 048
  17. UBIQUINAL [Concomitant]
  18. BIOTIN [Concomitant]
     Active Substance: BIOTIN

REACTIONS (8)
  - Psychomotor hyperactivity [None]
  - Product substitution issue [None]
  - Palpitations [None]
  - Tremor [None]
  - Product solubility abnormal [None]
  - Logorrhoea [None]
  - Mydriasis [None]
  - Euphoric mood [None]

NARRATIVE: CASE EVENT DATE: 20191015
